FAERS Safety Report 8808386 (Version 2)
Quarter: 2012Q4

REPORT INFORMATION
  Report Type: 
  Country: US (occurrence: US)
  Receive Date: 20120926
  Receipt Date: 20121212
  Transmission Date: 20130627
  Serious: No
  Sender: FDA-Public Use
  Company Number: US-PFIZER INC-2012234843

PATIENT
  Age: 90 Year
  Sex: Male
  Weight: 64.8 kg

DRUGS (6)
  1. SUTENT [Suspect]
     Indication: PANCREATIC NEUROENDOCRINE TUMOUR
     Dosage: 25 mg, UNK
     Dates: start: 20120904
  2. ZOMETA [Concomitant]
     Dosage: UNK
  3. TRAMADOL [Concomitant]
     Dosage: UNK
  4. CLONAZEPAM [Concomitant]
     Dosage: 0.5 mg, UNK
  5. QUINAPRIL [Concomitant]
     Dosage: 20 mg, daily
  6. ACIDOPHILUS [Concomitant]
     Dosage: UNK

REACTIONS (4)
  - Gingival infection [Unknown]
  - Fatigue [Unknown]
  - Disease progression [Unknown]
  - Pancreatic neuroendocrine tumour [Unknown]
